FAERS Safety Report 7211156-X (Version None)
Quarter: 2011Q1

REPORT INFORMATION
  Report Type: 
  Country: None (occurrence: None)
  Receive Date: 20110105
  Receipt Date: 20101228
  Transmission Date: 20110831
  Serious: Yes (Other)
  Sender: FDA-Public Use
  Company Number: US-BAXTER-2010BH030918

PATIENT
  Age: 85 Year
  Sex: Male

DRUGS (10)
  1. DILTIAZEM BAXTER [Suspect]
     Indication: SUPRAVENTRICULAR TACHYCARDIA
     Route: 065
  2. OXYCODONE HCL [Concomitant]
     Indication: MUSCULOSKELETAL CHEST PAIN
     Route: 065
  3. FENTANYL CITRATE [Suspect]
     Route: 041
  4. FENTANYL CITRATE [Concomitant]
     Indication: MUSCULOSKELETAL CHEST PAIN
     Route: 065
  5. FENTANYL CITRATE [Suspect]
     Indication: MUSCULOSKELETAL CHEST PAIN
     Route: 041
  6. COLACE [Concomitant]
     Indication: PRODUCT USED FOR UNKNOWN INDICATION
     Route: 065
  7. PREVACID [Concomitant]
     Indication: PRODUCT USED FOR UNKNOWN INDICATION
     Route: 065
  8. SENNA [Concomitant]
     Indication: PRODUCT USED FOR UNKNOWN INDICATION
     Route: 065
  9. FLOMAX [Concomitant]
     Indication: PRODUCT USED FOR UNKNOWN INDICATION
     Route: 065
  10. RANITIDINE [Concomitant]
     Indication: PRODUCT USED FOR UNKNOWN INDICATION
     Route: 065

REACTIONS (3)
  - TOXICITY TO VARIOUS AGENTS [None]
  - DRUG INTERACTION [None]
  - DELIRIUM [None]
